FAERS Safety Report 8281937-2 (Version None)
Quarter: 2012Q2

REPORT INFORMATION
  Report Type: 
  Country: None (occurrence: None)
  Receive Date: 20120410
  Receipt Date: 20120314
  Transmission Date: 20120825
  Serious: Yes (Other)
  Sender: FDA-Public Use
  Company Number: 1713747-2012-00001

PATIENT
  Sex: Male

DRUGS (1)
  1. DELFLEX W/ DEXTROSE 2.5% [Suspect]
     Indication: RENAL FAILURE CHRONIC
     Dosage: 3L, IP
     Route: 033
     Dates: start: 20120306

REACTIONS (2)
  - ACCIDENTAL EXPOSURE [None]
  - WOUND INFECTION [None]
